FAERS Safety Report 4784564-4 (Version None)
Quarter: 2005Q3

REPORT INFORMATION
  Report Type: 
  Country: None (occurrence: None)
  Receive Date: 20050928
  Receipt Date: 20050908
  Transmission Date: 20060218
  Serious: Yes (Death, Other)
  Sender: FDA-Public Use
  Company Number: US_0509121685

PATIENT
  Age: 37 Year
  Sex: Male

DRUGS (2)
  1. PROZAC [Suspect]
     Dosage: 40 MG
  2. RISPERIDONE [Concomitant]

REACTIONS (15)
  - ANXIETY [None]
  - BLOOD GLUCOSE INCREASED [None]
  - BRADYCARDIA [None]
  - CARDIAC ARREST [None]
  - CARDIOTOXICITY [None]
  - CARDIOVASCULAR DISORDER [None]
  - COMPLETED SUICIDE [None]
  - DRUG INEFFECTIVE [None]
  - GRAND MAL CONVULSION [None]
  - HYPERTENSION [None]
  - NEUROTOXICITY [None]
  - OVERDOSE [None]
  - SEROTONIN SYNDROME [None]
  - SINUS TACHYCARDIA [None]
  - VENTRICULAR FIBRILLATION [None]
